FAERS Safety Report 22589602 (Version 1)
Quarter: 2023Q2

REPORT INFORMATION
  Report Type: Spontaneous
  Country: None (occurrence: US)
  Receive Date: 20230612
  Receipt Date: 20230612
  Transmission Date: 20230722
  Serious: Yes (Hospitalization)
  Sender: FDA-Public Use
  Company Number: US-Xttrium Laboratories, Inc-2142586

PATIENT
  Age: 73 Year
  Sex: Female

DRUGS (1)
  1. SCRUB CARE EXIDINE-2 CHG [Suspect]
     Active Substance: CHLORHEXIDINE GLUCONATE
     Route: 003
     Dates: end: 20230509

REACTIONS (1)
  - Urticaria [Recovered/Resolved]

NARRATIVE: CASE EVENT DATE: 20230509
